FAERS Safety Report 11167014 (Version 1)
Quarter: 2015Q2

REPORT INFORMATION
  Report Type: Report from Study
  Country: AT (occurrence: None)
  Receive Date: 20150603
  Receipt Date: 20150603
  Transmission Date: 20150821
  Serious: Yes (Hospitalization)
  Sender: FDA-Public Use
  Company Number: 2014DEPAT00076

PATIENT
  Age: 15 Year
  Sex: Male
  Weight: 45 kg

DRUGS (10)
  1. FENOFIBRATE. [Concomitant]
     Active Substance: FENOFIBRATE
  2. NEXIUM [Concomitant]
     Active Substance: ESOMEPRAZOLE MAGNESIUM
  3. ETOPOSIDE (ETOPOSIDE PHOSPHATE) [Concomitant]
     Active Substance: ETOPOSIDE
  4. THALIDOMIDE [Concomitant]
     Active Substance: THALIDOMIDE
  5. CELECOXIB. [Concomitant]
     Active Substance: CELECOXIB
  6. THYREX (LEVOTHYROXINE SODIUM) [Concomitant]
  7. CYCLOPHOSPHAMIDE. [Concomitant]
     Active Substance: CYCLOPHOSPHAMIDE
  8. MAXI-KATZ VIT D3 (CALCIUM CARBONATE, COLECALCIFEROL) [Concomitant]
  9. DEPOCYT(E) (CYTARABINE) LIPOSOME INJECTABLE SUSPENSION, MG [Suspect]
     Active Substance: CYTARABINE
     Indication: MEDULLOBLASTOMA
     Dosage: 35 MG EVERY 4 WEEKS; LAST DOSE PRIOR TO SAE: 15JUL2014
     Route: 018
     Dates: start: 20140425
  10. EUSAPRIM (CO0TRIMOXAZOLE) [Concomitant]

REACTIONS (1)
  - Pyrexia [None]

NARRATIVE: CASE EVENT DATE: 20140728
